FAERS Safety Report 23957112 (Version 2)
Quarter: 2024Q3

REPORT INFORMATION
  Report Type: Spontaneous
  Country: AU (occurrence: AU)
  Receive Date: 20240610
  Receipt Date: 20240705
  Transmission Date: 20241017
  Serious: Yes (Congenital Anomaly, Other)
  Sender: LUPIN
  Company Number: AU-GENERIC HEALTH PTY. LTD.-2024-04600

PATIENT

DRUGS (2)
  1. LEVETIRACETAM [Suspect]
     Active Substance: LEVETIRACETAM
     Indication: Epilepsy
     Dosage: 2000 MG
     Route: 064
  2. LACOSAMIDE [Suspect]
     Active Substance: LACOSAMIDE
     Indication: Epilepsy
     Dosage: UNK
     Route: 064

REACTIONS (2)
  - Cytogenetic abnormality [Unknown]
  - Foetal exposure during pregnancy [Unknown]
